FAERS Safety Report 13208195 (Version 1)
Quarter: 2017Q1

REPORT INFORMATION
  Report Type: Spontaneous
  Country: US (occurrence: US)
  Receive Date: 20170208
  Receipt Date: 20170208
  Transmission Date: 20170428
  Serious: No
  Sender: FDA-Public Use
  Company Number: US-AMGEN-USASP2016159094

PATIENT

DRUGS (10)
  1. ADRIAMYCIN [Concomitant]
     Active Substance: DOXORUBICIN HYDROCHLORIDE
     Indication: HUMAN EPIDERMAL GROWTH FACTOR RECEPTOR NEGATIVE
  2. ADRIAMYCIN [Concomitant]
     Active Substance: DOXORUBICIN HYDROCHLORIDE
     Indication: INVASIVE DUCTAL BREAST CARCINOMA
  3. CYCLOPHOSPHAMIDE. [Concomitant]
     Active Substance: CYCLOPHOSPHAMIDE
     Dosage: UNK
     Route: 065
     Dates: start: 20161102
  4. ZOFRAN [Concomitant]
     Active Substance: ONDANSETRON HYDROCHLORIDE
     Indication: NAUSEA
     Dosage: UNK,  EVERY 8 HOURS LIKE CLOCKWORK
     Route: 065
     Dates: start: 201611
  5. ADRIAMYCIN [Concomitant]
     Active Substance: DOXORUBICIN HYDROCHLORIDE
     Indication: OESTROGEN RECEPTOR ASSAY POSITIVE
  6. TAXOL [Concomitant]
     Active Substance: PACLITAXEL
     Dosage: UNK
     Route: 065
     Dates: start: 20161102
  7. NEULASTA [Suspect]
     Active Substance: PEGFILGRASTIM
     Indication: PRODUCT USED FOR UNKNOWN INDICATION
     Dosage: UNK
     Route: 065
     Dates: start: 201611
  8. EMEND [Concomitant]
     Active Substance: APREPITANT
     Indication: NAUSEA
     Dosage: UNK,  DAY 1-3, THEN ON DAY 4-5
     Route: 065
     Dates: start: 200611
  9. ADRIAMYCIN [Concomitant]
     Active Substance: DOXORUBICIN HYDROCHLORIDE
     Indication: INTRADUCTAL PROLIFERATIVE BREAST LESION
     Dosage: UNK
     Route: 065
     Dates: start: 20161102
  10. ADRIAMYCIN [Concomitant]
     Active Substance: DOXORUBICIN HYDROCHLORIDE
     Indication: PROGESTERONE RECEPTOR ASSAY POSITIVE

REACTIONS (3)
  - Intervertebral disc protrusion [Unknown]
  - Pain [Unknown]
  - Dizziness [Unknown]

NARRATIVE: CASE EVENT DATE: 201611
